FAERS Safety Report 18204996 (Version 3)
Quarter: 2020Q3

REPORT INFORMATION
  Report Type: Spontaneous
  Country: UG (occurrence: UG)
  Receive Date: 20200828
  Receipt Date: 20200919
  Transmission Date: 20201103
  Serious: Yes (Other)
  Sender: FDA-Public Use
  Company Number: UG-HETERO-HET2020UG00948

PATIENT
  Age: 26 Year
  Sex: Female

DRUGS (3)
  1. TENOFOVIR DISOPROXIL MYLAN         /01490008/ [Suspect]
     Active Substance: TENOFOVIR DISOPROXIL
     Indication: HIV INFECTION
     Dosage: 300 MG, QD (FIRST TRIMEISTER)
     Route: 048
     Dates: start: 20180320
  2. TIVICAY [Suspect]
     Active Substance: DOLUTEGRAVIR SODIUM
     Indication: HIV INFECTION
     Dosage: 50 MG, QD (FIRST TRIMEISTER)
     Route: 048
     Dates: start: 20180320
  3. LAMIVUDINE. [Suspect]
     Active Substance: LAMIVUDINE
     Indication: HIV INFECTION
     Dosage: 300 MG, QD (FIRST TRIMEISTER)
     Route: 048
     Dates: start: 20180320

REACTIONS (2)
  - Abortion spontaneous [Recovered/Resolved]
  - Maternal exposure during pregnancy [Recovered/Resolved]

NARRATIVE: CASE EVENT DATE: 20200220
